FAERS Safety Report 5669750-3 (Version None)
Quarter: 2008Q1

REPORT INFORMATION
  Report Type: 
  Country: None (occurrence: None)
  Receive Date: 20080317
  Receipt Date: 20080306
  Transmission Date: 20080703
  Serious: Yes (Other)
  Sender: FDA-Public Use
  Company Number: US-PFIZER INC-2008002227

PATIENT
  Sex: Female
  Weight: 72.6 kg

DRUGS (14)
  1. CHANTIX [Suspect]
     Indication: EX-SMOKER
     Route: 048
     Dates: start: 20071201, end: 20080104
  2. LEVOTHROID [Concomitant]
     Route: 048
  3. PHENOBARBITAL TAB [Concomitant]
     Route: 048
  4. DILANTIN [Concomitant]
     Route: 048
  5. PULMICORT [Concomitant]
  6. COMBIVENT [Concomitant]
     Route: 055
  7. FLONASE [Concomitant]
  8. PROTONIX [Concomitant]
  9. PROZAC [Concomitant]
  10. LORTAB [Concomitant]
  11. OMEPRAZOLE [Concomitant]
  12. DIAZEPAM [Concomitant]
  13. PREMARIN [Concomitant]
  14. CLARITIN [Concomitant]

REACTIONS (1)
  - NO ADVERSE EVENT [None]
